FAERS Safety Report 17685844 (Version 2)
Quarter: 2020Q3

REPORT INFORMATION
  Report Type: Spontaneous
  Country: US (occurrence: US)
  Receive Date: 20200420
  Receipt Date: 20200908
  Transmission Date: 20201102
  Serious: Yes (Other)
  Sender: FDA-Public Use
  Company Number: US-TEVA-2020-US-1223608

PATIENT
  Sex: Female

DRUGS (4)
  1. COZAAR [Concomitant]
     Active Substance: LOSARTAN POTASSIUM
     Dosage: 25 MILLIGRAM DAILY;
     Route: 065
  2. MORPHINE [Concomitant]
     Active Substance: MORPHINE
  3. PREVACID [Concomitant]
     Active Substance: LANSOPRAZOLE
     Dosage: Q DAY
     Route: 065
  4. ACETAMINOPHEN W/HYDROCODONE [Suspect]
     Active Substance: ACETAMINOPHEN\HYDROCODONE
     Route: 065

REACTIONS (1)
  - Impaired gastric emptying [Unknown]
